FAERS Safety Report 9097168 (Version 1)
Quarter: 2013Q1

REPORT INFORMATION
  Report Type: Report from Study
  Country: CA (occurrence: CA)
  Receive Date: 20130212
  Receipt Date: 20130212
  Transmission Date: 20140127
  Serious: Yes (Other)
  Sender: FDA-Public Use
  Company Number: PHHY2012CA110157

PATIENT
  Age: 58 Year
  Sex: Female

DRUGS (1)
  1. CLOZARIL [Suspect]
     Indication: SCHIZOPHRENIA
     Dosage: 200 MG DAILY
     Route: 048
     Dates: start: 20070720

REACTIONS (3)
  - Pneumonia [Unknown]
  - Pancreatitis chronic [Unknown]
  - Hepatic enzyme abnormal [Unknown]
